FAERS Safety Report 8999384 (Version 1)
Quarter: 2013Q1

REPORT INFORMATION
  Report Type: Spontaneous
  Country: DE (occurrence: DE)
  Receive Date: 20130103
  Receipt Date: 20130103
  Transmission Date: 20140127
  Serious: Yes (Other)
  Sender: FDA-Public Use
  Company Number: DE-PFIZER INC-2012329896

PATIENT
  Age: 49 Year
  Sex: Male

DRUGS (1)
  1. FLUOROURACIL [Suspect]
     Indication: RECTAL CANCER
     Dosage: 1000 MG/QM PER DAY, DAY 1-5 IN 1ST AND 5TH WEEK OF THERAPY

REACTIONS (3)
  - Angina pectoris [Recovered/Resolved]
  - Electrocardiogram T wave inversion [Recovered/Resolved]
  - Bundle branch block left [Recovered/Resolved]
